FAERS Safety Report 25602044 (Version 1)
Quarter: 2025Q3

REPORT INFORMATION
  Report Type: Spontaneous
  Country: EU (occurrence: EU)
  Receive Date: 20250724
  Receipt Date: 20250724
  Transmission Date: 20251020
  Serious: Yes (Other)
  Sender: BIOVITRUM
  Company Number: EU-BIOVITRUM-2025-ES-010174

PATIENT
  Age: 28 Year
  Sex: Male

DRUGS (2)
  1. NITISINONE [Suspect]
     Active Substance: NITISINONE
     Indication: Tyrosinaemia
     Route: 048
  2. NITISINONE [Suspect]
     Active Substance: NITISINONE
     Route: 048

REACTIONS (1)
  - Neutropenia [Recovered/Resolved]
